FAERS Safety Report 11434425 (Version 1)
Quarter: 2015Q3

REPORT INFORMATION
  Report Type: Spontaneous
  Country: US (occurrence: US)
  Receive Date: 20150831
  Receipt Date: 20150831
  Transmission Date: 20151125
  Serious: Yes (Death)
  Sender: FDA-Public Use
  Company Number: US-PFIZER INC-2015277542

PATIENT
  Age: 79 Year
  Sex: Male

DRUGS (1)
  1. SUTENT [Suspect]
     Active Substance: SUNITINIB MALATE
     Indication: RENAL CELL CARCINOMA
     Dosage: 50 MG, CYCLIC, ONCE DAILY FOR FOUR WEEKS, THEN OFF FOR TWO
     Route: 048

REACTIONS (3)
  - Renal cell carcinoma [Fatal]
  - Cardio-respiratory arrest [Fatal]
  - Disease progression [Fatal]

NARRATIVE: CASE EVENT DATE: 20150809
